FAERS Safety Report 9965652 (Version 1)
Quarter: 2014Q1

REPORT INFORMATION
  Report Type: Report from Study
  Country: US (occurrence: US)
  Receive Date: 20140305
  Receipt Date: 20140305
  Transmission Date: 20141002
  Serious: No
  Sender: FDA-Public Use
  Company Number: US-ABBVIE-13P-163-1127232-00

PATIENT
  Age: 36 Year
  Sex: Male

DRUGS (4)
  1. HUMIRA [Suspect]
     Indication: CROHN^S DISEASE
     Dosage: LOADING DOSE
     Dates: start: 20130711, end: 20130711
  2. HUMIRA [Suspect]
     Dosage: LOAADING DOSE
     Dates: start: 20130725
  3. ENTOCORT [Concomitant]
     Indication: CROHN^S DISEASE
  4. XIFAXAN [Concomitant]
     Indication: CROHN^S DISEASE

REACTIONS (2)
  - Tongue discolouration [Not Recovered/Not Resolved]
  - Oral fungal infection [Not Recovered/Not Resolved]
